FAERS Safety Report 7169454-4 (Version None)
Quarter: 2010Q4

REPORT INFORMATION
  Report Type: 
  Country: None (occurrence: None)
  Receive Date: 20101217
  Receipt Date: 20101208
  Transmission Date: 20110411
  Serious: Yes (Hospitalization)
  Sender: FDA-Public Use
  Company Number: FR-BIOGENIDEC-2010BI043065

PATIENT
  Age: 40 Year
  Sex: Female

DRUGS (5)
  1. TYSABRI [Suspect]
     Indication: MULTIPLE SCLEROSIS
     Route: 042
     Dates: start: 20081208, end: 20100507
  2. DEPAKENE [Concomitant]
     Indication: EPILEPSY
  3. URBANYL [Concomitant]
  4. OMEXEL [Concomitant]
  5. CERIS [Concomitant]

REACTIONS (1)
  - EPILEPSY [None]
